FAERS Safety Report 5117841-8 (Version None)
Quarter: 2006Q3

REPORT INFORMATION
  Report Type: 
  Country: None (occurrence: None)
  Receive Date: 20060929
  Receipt Date: 20060908
  Transmission Date: 20061208
  Serious: No
  Sender: FDA-Public Use
  Company Number: JP-SANOFI-SYNTHELABO-A01200607377

PATIENT
  Sex: Male
  Weight: 70 kg

DRUGS (4)
  1. PLAVIX [Suspect]
     Indication: PROPHYLAXIS
     Route: 048
     Dates: start: 20060722, end: 20060811
  2. PLAVIX [Suspect]
     Indication: CEREBRAL INFARCTION
     Route: 048
     Dates: start: 20060722, end: 20060811
  3. MUCOSTA [Concomitant]
     Indication: PROPHYLAXIS
     Dosage: 1 UNIT
     Route: 048
     Dates: start: 20060722, end: 20060811
  4. JUVELA N [Concomitant]
     Indication: HYPERLIPIDAEMIA
     Dosage: 2 UNIT
     Route: 048
     Dates: start: 20060722, end: 20060811

REACTIONS (5)
  - ABDOMINAL PAIN UPPER [None]
  - BLOOD CREATINE PHOSPHOKINASE INCREASED [None]
  - HEADACHE [None]
  - HYPOAESTHESIA [None]
  - MUSCLE SPASMS [None]
